FAERS Safety Report 19685497 (Version 1)
Quarter: 2021Q3

REPORT INFORMATION
  Report Type: Spontaneous
  Country: US (occurrence: US)
  Receive Date: 20210810
  Receipt Date: 20210810
  Transmission Date: 20211014
  Serious: Yes (Other)
  Sender: FDA-Public Use
  Company Number: None

PATIENT
  Age: 86 Year
  Sex: Female
  Weight: 64.86 kg

DRUGS (23)
  1. PROBIOTIC [Concomitant]
     Active Substance: PROBIOTICS NOS
  2. MEGA FISH  OIL [Concomitant]
  3. BETACAROTENE [Concomitant]
     Active Substance: .BETA.-CAROTENE
  4. FOLIC ACID. [Concomitant]
     Active Substance: FOLIC ACID
  5. ECHINACEA [Concomitant]
     Active Substance: ECHINACEA, UNSPECIFIED
  6. ATENOLOL. [Concomitant]
     Active Substance: ATENOLOL
  7. DHEA [Concomitant]
     Active Substance: PRASTERONE
  8. CACLIUM [Concomitant]
  9. CEPHALEXIN 500MG CAPSULES [Suspect]
     Active Substance: CEPHALEXIN
     Indication: LOCALISED INFECTION
     Dosage: ?          QUANTITY:21;?
     Route: 048
     Dates: start: 20210407, end: 20210707
  10. GLUCOSAMINE [Concomitant]
     Active Substance: GLUCOSAMINE
  11. RED YEAST RICE [Concomitant]
     Active Substance: DIETARY SUPPLEMENT
  12. VITAMIN D3 [Concomitant]
     Active Substance: CHOLECALCIFEROL
  13. POTASIUM [Concomitant]
  14. ZINC. [Concomitant]
     Active Substance: ZINC
  15. VITAMIN B12 [Concomitant]
     Active Substance: CYANOCOBALAMIN
  16. B6 [Concomitant]
     Active Substance: PYRIDOXINE HYDROCHLORIDE
  17. TURMERIC [Concomitant]
     Active Substance: HERBALS\TURMERIC
  18. GINKGO BALOBA [Concomitant]
  19. CO?G?10 [Concomitant]
  20. CEPHALEXIN 500MG CAPSULES [Suspect]
     Active Substance: CEPHALEXIN
     Indication: ARTHROPOD STING
     Dosage: ?          QUANTITY:21;?
     Route: 048
     Dates: start: 20210407, end: 20210707
  21. LUTEIN [Concomitant]
     Active Substance: LUTEIN
  22. SELENIUM [Concomitant]
     Active Substance: SELENIUM
  23. MELATONIN [Concomitant]
     Active Substance: MELATONIN

REACTIONS (16)
  - Nervousness [None]
  - Depression [None]
  - Anxiety [None]
  - Asthenia [None]
  - Insomnia [None]
  - Phobia [None]
  - Confusional state [None]
  - Decreased appetite [None]
  - Vaginal discharge [None]
  - Fatigue [None]
  - Feeling of despair [None]
  - Disturbance in attention [None]
  - Sleep deficit [None]
  - Urine output decreased [None]
  - Vulvovaginal pruritus [None]
  - Frustration tolerance decreased [None]
